FAERS Safety Report 4861038-3 (Version None)
Quarter: 2005Q4

REPORT INFORMATION
  Report Type: 
  Country: None (occurrence: None)
  Receive Date: 20051216
  Receipt Date: 20051205
  Transmission Date: 20060501
  Serious: Yes (Disabling)
  Sender: FDA-Public Use
  Company Number: HQWYE891607DEC05

PATIENT
  Age: 25 Year
  Sex: Male
  Weight: 99.88 kg

DRUGS (5)
  1. EFFEXOR XR [Suspect]
     Indication: GENERALISED ANXIETY DISORDER
     Dosage: 75 MG 1X PER 1 DAY ORAL
     Route: 048
     Dates: start: 20050601, end: 20050701
  2. EFFEXOR [Suspect]
     Indication: GENERALISED ANXIETY DISORDER
     Dosage: SEE IMAGE
     Route: 048
     Dates: start: 20050701, end: 20050701
  3. EFFEXOR [Suspect]
     Indication: GENERALISED ANXIETY DISORDER
     Dosage: SEE IMAGE
     Route: 048
     Dates: start: 20050701, end: 20050801
  4. XANAX [Concomitant]
  5. PREVACID [Concomitant]

REACTIONS (16)
  - ABDOMINAL PAIN UPPER [None]
  - ANXIETY [None]
  - CONDITION AGGRAVATED [None]
  - DIARRHOEA [None]
  - DIFFICULTY IN WALKING [None]
  - DISTURBANCE IN ATTENTION [None]
  - DRUG EFFECT DECREASED [None]
  - DRUG WITHDRAWAL SYNDROME [None]
  - FEELING ABNORMAL [None]
  - HEADACHE [None]
  - HICCUPS [None]
  - MENIERE'S DISEASE [None]
  - TEMPERATURE INTOLERANCE [None]
  - VISION BLURRED [None]
  - WEIGHT DECREASED [None]
  - WEIGHT INCREASED [None]
